FAERS Safety Report 7315980-4 (Version None)
Quarter: 2011Q1

REPORT INFORMATION
  Report Type: 
  Country: None (occurrence: None)
  Receive Date: 20110225
  Receipt Date: 20110210
  Transmission Date: 20110831
  Serious: Yes (Hospitalization, Other)
  Sender: FDA-Public Use
  Company Number: PHHY2009JP33612

PATIENT
  Sex: Male

DRUGS (19)
  1. AMARYL [Suspect]
     Indication: DIABETES MELLITUS
     Dosage: 1 MG,DAILY
     Route: 048
     Dates: start: 20081217, end: 20090806
  2. AMARYL [Suspect]
     Dosage: 2 MG, DAILY
     Route: 048
     Dates: start: 20100423
  3. JANUVIA [Suspect]
     Indication: DIABETES MELLITUS
     Dosage: 50 MG, DAILY
     Route: 048
     Dates: end: 20100310
  4. JANUVIA [Suspect]
     Dosage: 50 MG, DAILY
     Route: 048
  5. GLUCOBAY [Concomitant]
     Indication: DIABETES MELLITUS
     Dosage: 150 MG, UNK
     Route: 048
     Dates: start: 20080611, end: 20100122
  6. TASIGNA [Suspect]
     Dosage: 400 MG, DAILY
     Route: 048
     Dates: start: 20091218, end: 20100308
  7. AMARYL [Suspect]
     Dosage: 1 MG,DAILY
     Route: 048
     Dates: end: 20100422
  8. TASIGNA [Suspect]
     Dosage: 400 MG, DAILY
     Route: 048
     Dates: start: 20100326
  9. AMARYL [Suspect]
     Dosage: 3 MG, DAILY
     Route: 048
     Dates: start: 20090821, end: 20100310
  10. SENNOSIDE [Concomitant]
     Indication: CONSTIPATION
     Dosage: 24 MG, UNK
     Route: 048
     Dates: start: 20080402
  11. TASIGNA [Suspect]
     Indication: CHRONIC MYELOID LEUKAEMIA
     Dosage: 800 MG, DAILY
     Route: 048
     Dates: start: 20090508, end: 20090512
  12. AMARYL [Suspect]
     Dosage: 2 MG,DAILY
     Route: 048
     Dates: start: 20090807, end: 20090820
  13. SENNOSIDE [Concomitant]
     Indication: DIABETES MELLITUS
  14. TASIGNA [Suspect]
     Dosage: 400 MG DAILY
     Route: 048
     Dates: start: 20090612, end: 20090724
  15. TASIGNA [Suspect]
     Dosage: 800 MG DAILY
     Route: 048
     Dates: start: 20090522, end: 20090602
  16. TASIGNA [Suspect]
     Dosage: 400 MG DAILY
     Route: 048
     Dates: start: 20090807, end: 20091211
  17. HYDREA [Concomitant]
     Indication: CHRONIC MYELOID LEUKAEMIA
     Dosage: 1000 MG, UNK
     Route: 048
     Dates: end: 20090508
  18. KAMAG G [Concomitant]
     Indication: DIABETES MELLITUS
     Dosage: 3.0 G, UNK
     Route: 048
     Dates: start: 20080402, end: 20090822
  19. KAMAG G [Concomitant]
     Indication: CONSTIPATION

REACTIONS (13)
  - ABDOMINAL DISCOMFORT [None]
  - ABDOMINAL DISTENSION [None]
  - ABDOMINAL PAIN UPPER [None]
  - BLOOD PHOSPHORUS DECREASED [None]
  - BLOOD GLUCOSE INCREASED [None]
  - DECREASED APPETITE [None]
  - RASH PAPULAR [None]
  - WEIGHT DECREASED [None]
  - HYPOGLYCAEMIA [None]
  - ALTERED STATE OF CONSCIOUSNESS [None]
  - PLATELET COUNT DECREASED [None]
  - RASH GENERALISED [None]
  - ELECTROCARDIOGRAM QT PROLONGED [None]
